FAERS Safety Report 18253181 (Version 3)
Quarter: 2021Q1

REPORT INFORMATION
  Report Type: Spontaneous
  Country: US (occurrence: US)
  Receive Date: 20200910
  Receipt Date: 20210209
  Transmission Date: 20210419
  Serious: Yes (Other)
  Sender: FDA-Public Use
  Company Number: US-PFIZER INC-2020347917

PATIENT
  Age: 78 Year
  Sex: Male

DRUGS (1)
  1. INLYTA [Suspect]
     Active Substance: AXITINIB
     Indication: RENAL CANCER
     Dosage: 5 MG, 2X/DAY
     Route: 048
     Dates: start: 202007

REACTIONS (6)
  - Neoplasm progression [Unknown]
  - Dysphonia [Not Recovered/Not Resolved]
  - Body height decreased [Unknown]
  - Hypoacusis [Unknown]
  - Cellulitis [Unknown]
  - Laryngitis [Unknown]

NARRATIVE: CASE EVENT DATE: 202007
